FAERS Safety Report 4714330-7 (Version None)
Quarter: 2005Q3

REPORT INFORMATION
  Report Type: 
  Country: None (occurrence: None)
  Receive Date: 20050701
  Receipt Date: 20050303
  Transmission Date: 20060218
  Serious: Yes (Other)
  Sender: FDA-Public Use
  Company Number: 141499USA

PATIENT
  Age: 30 Year
  Sex: Male

DRUGS (1)
  1. GABAPENTIN [Suspect]
     Indication: CONVULSION
     Dosage: 600 MILLIGRAM TID ORAL
     Route: 048
     Dates: start: 20050225

REACTIONS (2)
  - CONVULSION [None]
  - DRUG INEFFECTIVE [None]
